FAERS Safety Report 10070782 (Version 2)
Quarter: 2014Q2

REPORT INFORMATION
  Report Type: Report from Study
  Country: BE (occurrence: BE)
  Receive Date: 20140410
  Receipt Date: 20140520
  Transmission Date: 20141212
  Serious: Yes (Hospitalization)
  Sender: FDA-Public Use
  Company Number: BE-TEVA-474463ISR

PATIENT
  Age: 73 Year
  Sex: Male
  Weight: 84 kg

DRUGS (8)
  1. TRISENOX [Suspect]
     Indication: ACUTE PROMYELOCYTIC LEUKAEMIA
     Dosage: 12.6 MILLIGRAM DAILY;
     Route: 042
     Dates: start: 20140217, end: 20140307
  2. METHOTREXATE (NOS) [Suspect]
     Indication: ACUTE PROMYELOCYTIC LEUKAEMIA
     Dosage: 5 MILLIGRAM DAILY;
     Route: 048
     Dates: start: 20130822, end: 20140308
  3. VESANOID [Suspect]
     Indication: ACUTE PROMYELOCYTIC LEUKAEMIA
     Dosage: 90 MILLIGRAM DAILY;
     Route: 048
     Dates: start: 20140217, end: 20140303
  4. PURINETHOL [Suspect]
     Indication: ACUTE PROMYELOCYTIC LEUKAEMIA
     Dosage: 50 MILLIGRAM DAILY;
     Route: 048
     Dates: start: 20130822, end: 20140308
  5. CRESTOR [Concomitant]
     Indication: HYPERTENSION
     Dosage: 10 MILLIGRAM DAILY;
     Route: 048
     Dates: end: 20140326
  6. EMCONCOR MINOR [Concomitant]
     Indication: HYPERTENSION
     Dosage: 2.5 MILLIGRAM DAILY;
     Route: 048
  7. ZOVIRAX [Concomitant]
     Indication: PROPHYLAXIS
     Dosage: 800 MILLIGRAM DAILY;
     Route: 048
  8. EUSAPRIM FORT [Concomitant]
     Indication: PROPHYLAXIS
     Route: 048

REACTIONS (2)
  - Acute respiratory failure [Recovered/Resolved]
  - Pneumonia [Recovered/Resolved]
